FAERS Safety Report 18542030 (Version 1)
Quarter: 2020Q4

REPORT INFORMATION
  Report Type: Spontaneous
  Country: US (occurrence: US)
  Receive Date: 20201125
  Receipt Date: 20201125
  Transmission Date: 20210114
  Serious: Yes (Other)
  Sender: FDA-Public Use
  Company Number: US-GRANULES-US-2020GRALIT00052

PATIENT
  Age: 8 Month
  Sex: Female

DRUGS (4)
  1. VIGABATRIN. [Suspect]
     Active Substance: VIGABATRIN
     Indication: INFANTILE SPASMS
     Dosage: 182 MG/KG/DAY
     Route: 065
  2. CLOBAZAM. [Interacting]
     Active Substance: CLOBAZAM
     Indication: MOVEMENT DISORDER
     Route: 065
  3. CLOBAZAM. [Interacting]
     Active Substance: CLOBAZAM
     Indication: ENCEPHALOPATHY
  4. ADRENOCORTICOTROPIC HORMONE [Suspect]
     Active Substance: CORTICOTROPIN
     Indication: INFANTILE SPASMS
     Route: 065

REACTIONS (3)
  - Toxicity to various agents [Recovered/Resolved]
  - Movement disorder [Recovered/Resolved]
  - Encephalopathy [Recovered/Resolved]
